FAERS Safety Report 19164870 (Version 2)
Quarter: 2021Q3

REPORT INFORMATION
  Report Type: Spontaneous
  Country: US (occurrence: US)
  Receive Date: 20210421
  Receipt Date: 20210804
  Transmission Date: 20211014
  Serious: No
  Sender: FDA-Public Use
  Company Number: US-PARATEK PHARMACEUTICALS, INC.-2021PTK00012

PATIENT
  Age: 52 Year
  Sex: Female

DRUGS (15)
  1. NUZYRA [Suspect]
     Active Substance: OMADACYCLINE
     Indication: MYCOBACTERIAL INFECTION
     Dosage: 150 MG, 1X/DAY
     Route: 048
     Dates: start: 20210105, end: 2021
  2. VITAMIN D3 [Concomitant]
     Active Substance: CHOLECALCIFEROL
  3. ATORVASTATIN [Concomitant]
     Active Substance: ATORVASTATIN
  4. CALCIUM [Concomitant]
     Active Substance: CALCIUM
  5. CEFOXITIN [Concomitant]
     Active Substance: CEFOXITIN SODIUM
  6. AMIKACIN. [Concomitant]
     Active Substance: AMIKACIN
     Dosage: 1200 MG
     Route: 042
  7. FISH OIL [Concomitant]
     Active Substance: FISH OIL
  8. WARFARIN [Concomitant]
     Active Substance: WARFARIN
  9. VITAMIN C [Concomitant]
     Active Substance: ASCORBIC ACID
  10. AMIKACIN. [Concomitant]
     Active Substance: AMIKACIN
     Dosage: 1000 MG
     Dates: end: 20210209
  11. NUZYRA [Suspect]
     Active Substance: OMADACYCLINE
     Dosage: 300 MG, 1X/DAY
     Route: 048
     Dates: start: 2021
  12. COLLAGEN POWDER [Concomitant]
  13. SINEQUAN [Concomitant]
     Active Substance: DOXEPIN HYDROCHLORIDE
  14. AMIKACIN. [Concomitant]
     Active Substance: AMIKACIN
     Dosage: 1200 MG
     Dates: start: 20210210
  15. ALIGN [Concomitant]
     Active Substance: BIFIDOBACTERIUM LONGUM SUBSP. INFANTIS

REACTIONS (4)
  - Off label use [Not Recovered/Not Resolved]
  - Dysgeusia [Not Recovered/Not Resolved]
  - Nausea [Not Recovered/Not Resolved]
  - Salivary hypersecretion [Not Recovered/Not Resolved]

NARRATIVE: CASE EVENT DATE: 2021
